FAERS Safety Report 9530997 (Version 1)
Quarter: 2013Q2

REPORT INFORMATION
  Report Type: Spontaneous
  Country: US (occurrence: None)
  Receive Date: 20130429
  Receipt Date: 20130429
  Transmission Date: 20140414
  Serious: Yes (Other)
  Sender: FDA-Public Use
  Company Number: JPI-P-021020

PATIENT
  Age: 50 Year
  Sex: Male

DRUGS (1)
  1. LUVOX CR [Suspect]
     Indication: PRODUCT USED FOR UNKNOWN INDICATION
     Dosage: 200 MG (100 MG, 2 IN 1 D)
     Route: 048

REACTIONS (3)
  - Suicidal ideation [None]
  - Paranoia [None]
  - Agitation [None]
